FAERS Safety Report 5344902-0 (Version None)
Quarter: 2007Q2

REPORT INFORMATION
  Report Type: 
  Country: None (occurrence: None)
  Receive Date: 20070416
  Receipt Date: 20070122
  Transmission Date: 20071010
  Serious: No
  Sender: FDA-Public Use
  Company Number: 2007SP000242

PATIENT
  Age: 70 Year
  Sex: Female
  Weight: 45.3597 kg

DRUGS (4)
  1. LUNESTA [Suspect]
     Indication: INSOMNIA
     Dosage: SEE IMAGE
     Route: 048
     Dates: start: 20070101, end: 20070101
  2. LUNESTA [Suspect]
     Indication: INSOMNIA
     Dosage: SEE IMAGE
     Route: 048
     Dates: start: 20070101
  3. EFFEXOR [Concomitant]
  4. MULTIVITAMIN [Concomitant]

REACTIONS (4)
  - DYSGEUSIA [None]
  - INSOMNIA [None]
  - PALPITATIONS [None]
  - SOMNOLENCE [None]
